FAERS Safety Report 14389044 (Version 2)
Quarter: 2018Q2

REPORT INFORMATION
  Report Type: Spontaneous
  Country: US (occurrence: US)
  Receive Date: 20180115
  Receipt Date: 20180611
  Transmission Date: 20180711
  Serious: Yes (Other)
  Sender: FDA-Public Use
  Company Number: US-SA-2017SA227197

PATIENT
  Age: 47 Year
  Sex: Female
  Weight: 102 kg

DRUGS (17)
  1. TAXOTERE [Suspect]
     Active Substance: DOCETAXEL
     Dosage: 100 MG/M2, Q3W
     Route: 042
     Dates: start: 20120817, end: 20120817
  2. CYTOXAN [Suspect]
     Active Substance: CYCLOPHOSPHAMIDE
     Indication: CHEMOTHERAPY
  3. VYVANSE [Concomitant]
     Active Substance: LISDEXAMFETAMINE DIMESYLATE
  4. ABILIFY [Concomitant]
     Active Substance: ARIPIPRAZOLE
  5. GLUCOPHAGE [Concomitant]
     Active Substance: METFORMIN HYDROCHLORIDE
  6. WARFARIN [Concomitant]
     Active Substance: WARFARIN
  7. WELLBUTRIN [Concomitant]
     Active Substance: BUPROPION HYDROCHLORIDE
  8. ATIVAN [Concomitant]
     Active Substance: LORAZEPAM
  9. KLONOPIN [Concomitant]
     Active Substance: CLONAZEPAM
  10. XYZAL [Concomitant]
     Active Substance: LEVOCETIRIZINE DIHYDROCHLORIDE
  11. DOXORUBICIN [Suspect]
     Active Substance: DOXORUBICIN
     Indication: CHEMOTHERAPY
  12. LEVOTHYROXINE. [Concomitant]
     Active Substance: LEVOTHYROXINE
  13. EFFEXOR [Concomitant]
     Active Substance: VENLAFAXINE HYDROCHLORIDE
  14. HYDROCODONE [Concomitant]
     Active Substance: HYDROCODONE
  15. NEOSAR [Concomitant]
     Active Substance: CYCLOPHOSPHAMIDE
     Indication: CHEMOTHERAPY
  16. TAXOTERE [Suspect]
     Active Substance: DOCETAXEL
     Indication: BREAST CANCER
     Dosage: 100 MG/M2, Q3W
     Route: 042
     Dates: start: 20121026, end: 20121026
  17. ADRIAMYCIN [DOXORUBICIN] [Concomitant]
     Indication: CHEMOTHERAPY

REACTIONS (2)
  - Psychological trauma [Unknown]
  - Alopecia [Recovering/Resolving]

NARRATIVE: CASE EVENT DATE: 20130427
